FAERS Safety Report 11955256 (Version 1)
Quarter: 2016Q1

REPORT INFORMATION
  Report Type: Spontaneous
  Country: JP (occurrence: JP)
  Receive Date: 20160126
  Receipt Date: 20160126
  Transmission Date: 20160526
  Serious: Yes (Other)
  Sender: FDA-Public Use
  Company Number: JP-GILEAD-2016-0193225

PATIENT
  Age: 84 Year
  Sex: Male

DRUGS (16)
  1. CAMOSTAT [Concomitant]
     Active Substance: CAMOSTAT
     Dosage: 1 DF, TID
     Route: 048
  2. JANUVIA [Concomitant]
     Active Substance: SITAGLIPTIN PHOSPHATE
     Dosage: 1 DF, UNK
     Route: 048
  3. TAMSULOSIN [Concomitant]
     Active Substance: TAMSULOSIN
     Dosage: 1 DF, UNK
     Route: 048
  4. MAINTATE [Concomitant]
     Active Substance: BISOPROLOL FUMARATE
     Dosage: 1 DF, UNK
     Route: 048
  5. XARELTO [Concomitant]
     Active Substance: RIVAROXABAN
     Dosage: 1 DF, UNK
     Route: 048
  6. TRESIBA [Concomitant]
     Active Substance: INSULIN DEGLUDEC
     Dosage: 1 UNIT, BEFORE BED
     Route: 042
  7. HARVONI [Suspect]
     Active Substance: LEDIPASVIR\SOFOSBUVIR
     Indication: PRODUCT USED FOR UNKNOWN INDICATION
     Dosage: 1 DF, UNK
     Route: 048
     Dates: start: 20160107, end: 20160114
  8. LIVACT                             /00847901/ [Concomitant]
     Active Substance: ISOLEUCINE\LEUCINE\VALINE
     Dosage: UNK UNK, TID
     Route: 048
  9. URSO [Concomitant]
     Active Substance: URSODIOL
     Dosage: 2 DF, TID
     Route: 048
  10. BIOFERMIN                          /01617201/ [Concomitant]
     Active Substance: BACILLUS SUBTILIS\LACTOBACILLUS ACIDOPHILUS\STREPTOCOCCUS FAECAIS
     Dosage: 2 G, TID
     Route: 048
  11. OLMETEC [Concomitant]
     Active Substance: OLMESARTAN MEDOXOMIL
     Dosage: 1 DF, UNK
     Route: 048
  12. NOVORAPID [Concomitant]
     Active Substance: INSULIN ASPART
     Dosage: MORNING 10 UNITS, NOON 11 UNITS, EVENING 5 UNITS
     Route: 042
  13. MAGMITT [Concomitant]
     Active Substance: MAGNESIUM OXIDE
     Dosage: UNK UNK, PRN
     Route: 048
  14. OMEPRAL                            /00661201/ [Concomitant]
     Active Substance: OMEPRAZOLE
     Dosage: 1 DF, UNK
     Route: 048
  15. TOUGHMAC E [Concomitant]
     Active Substance: AMYLASE\LIPASE\PROTEASE
     Dosage: UNK UNK, TID
     Route: 048
  16. SUNRYTHM [Concomitant]
     Active Substance: PILSICAINIDE HYDROCHLORIDE
     Dosage: 1 UNK, BID
     Route: 048

REACTIONS (1)
  - Renal impairment [Not Recovered/Not Resolved]

NARRATIVE: CASE EVENT DATE: 20160112
